FAERS Safety Report 19393574 (Version 1)
Quarter: 2021Q2

REPORT INFORMATION
  Report Type: Spontaneous
  Country: US (occurrence: US)
  Receive Date: 20210608
  Receipt Date: 20210608
  Transmission Date: 20210717
  Serious: Yes (Other)
  Sender: FDA-Public Use
  Company Number: None

PATIENT
  Age: 51 Year
  Sex: Female

DRUGS (10)
  1. FAMOTIDINE. [Concomitant]
     Active Substance: FAMOTIDINE
  2. CETIRIZINE [Concomitant]
     Active Substance: CETIRIZINE HYDROCHLORIDE
  3. FLUTICASONE. [Concomitant]
     Active Substance: FLUTICASONE
  4. EPIPEN [Concomitant]
     Active Substance: EPINEPHRINE
  5. LORATADINE. [Concomitant]
     Active Substance: LORATADINE
  6. PREDNISONE. [Concomitant]
     Active Substance: PREDNISONE
  7. DUPIXENT [Suspect]
     Active Substance: DUPILUMAB
     Indication: ECZEMA
     Route: 058
     Dates: start: 202103
  8. TRIAMCINOLONE [Concomitant]
     Active Substance: TRIAMCINOLONE
  9. DESONIDE. [Concomitant]
     Active Substance: DESONIDE
  10. TRIAMCINOLONE [Concomitant]
     Active Substance: TRIAMCINOLONE

REACTIONS (3)
  - Contusion [None]
  - Eye swelling [None]
  - Dysgeusia [None]
